FAERS Safety Report 5714360-2 (Version None)
Quarter: 2008Q2

REPORT INFORMATION
  Report Type: 
  Country: None (occurrence: None)
  Receive Date: 20080423
  Receipt Date: 20070629
  Transmission Date: 20081010
  Serious: Yes (Other)
  Sender: FDA-Public Use
  Company Number: NL-JNJFOC-20070700054

PATIENT
  Sex: Female
  Weight: 65 kg

DRUGS (2)
  1. TRISPORAL [Suspect]
     Indication: ONYCHOMYCOSIS
     Route: 065
  2. BISOPROLOL FUMARATE [Interacting]
     Indication: ONYCHOMYCOSIS
     Route: 065

REACTIONS (2)
  - CARDIAC FAILURE [None]
  - DRUG INTERACTION [None]
